FAERS Safety Report 8270304-3 (Version None)
Quarter: 2012Q2

REPORT INFORMATION
  Report Type: 
  Country: None (occurrence: None)
  Receive Date: 20120410
  Receipt Date: 20120330
  Transmission Date: 20120825
  Serious: Yes (Other)
  Sender: FDA-Public Use
  Company Number: CA-JNJFOC-20120400594

PATIENT
  Sex: Female
  Weight: 60 kg

DRUGS (4)
  1. LORAZEPAM [Concomitant]
     Route: 065
  2. CITALOPRAM HYDROBROMIDE [Concomitant]
     Route: 065
  3. PERCOCET [Concomitant]
     Route: 065
  4. REMICADE [Suspect]
     Indication: CROHN'S DISEASE
     Route: 042
     Dates: start: 20070801

REACTIONS (3)
  - KIDNEY INFECTION [None]
  - NEPHROLITHIASIS [None]
  - ABORTION SPONTANEOUS [None]
